FAERS Safety Report 24770357 (Version 1)
Quarter: 2024Q4

REPORT INFORMATION
  Report Type: Spontaneous
  Country: US (occurrence: None)
  Receive Date: 20241219
  Receipt Date: 20241219
  Transmission Date: 20250115
  Serious: No
  Sender: Public
  Company Number: None

PATIENT

DRUGS (1)
  1. BRIUMVI [Suspect]
     Active Substance: UBLITUXIMAB-XIIY

REACTIONS (6)
  - Chest discomfort [None]
  - Chest pain [None]
  - Dyspepsia [None]
  - Abdominal discomfort [None]
  - Diarrhoea [None]
  - Fatigue [None]
